FAERS Safety Report 9802801 (Version 1)
Quarter: 2014Q1

REPORT INFORMATION
  Report Type: Spontaneous
  Country: US (occurrence: None)
  Receive Date: 20140103
  Receipt Date: 20140103
  Transmission Date: 20141002
  Serious: Yes (Other)
  Sender: FDA-Public Use
  Company Number: None

PATIENT
  Age: 85 Year
  Sex: Male
  Weight: 72.3 kg

DRUGS (1)
  1. OCTREOTIDE [Suspect]
     Indication: GASTROINTESTINAL STOMA COMPLICATION
     Dates: start: 20130605, end: 20130816

REACTIONS (1)
  - Hyperkalaemia [None]
